FAERS Safety Report 5286694-X (Version None)
Quarter: 2007Q2

REPORT INFORMATION
  Report Type: 
  Country: None (occurrence: None)
  Receive Date: 20070404
  Receipt Date: 20070403
  Transmission Date: 20071010
  Serious: Yes (Other)
  Sender: FDA-Public Use
  Company Number: 2007AP01900

PATIENT
  Age: 26 Year
  Sex: Female

DRUGS (1)
  1. SEROQUEL [Suspect]
     Indication: SCHIZOPHRENIA
     Dosage: MORE THAN 10 TABLETS
     Route: 048
     Dates: start: 20070320, end: 20070330

REACTIONS (3)
  - DIZZINESS [None]
  - INTENTIONAL OVERDOSE [None]
  - LETHARGY [None]
